FAERS Safety Report 21363971 (Version 1)
Quarter: 2022Q3

REPORT INFORMATION
  Report Type: Spontaneous
  Country: US (occurrence: None)
  Receive Date: 20220921
  Receipt Date: 20220921
  Transmission Date: 20221027
  Serious: Yes (Other)
  Sender: FDA-Public Use
  Company Number: None

PATIENT
  Age: 9 Year
  Sex: Female
  Weight: 22.95 kg

DRUGS (1)
  1. SINGULAIR [Suspect]
     Active Substance: MONTELUKAST SODIUM
     Indication: Rhinitis
     Dosage: FREQUENCY : DAILY;?
     Route: 048
     Dates: start: 20220916, end: 20220920

REACTIONS (3)
  - Mood swings [None]
  - Crying [None]
  - Depressed mood [None]

NARRATIVE: CASE EVENT DATE: 20220920
